FAERS Safety Report 17667514 (Version 56)
Quarter: 2022Q3

REPORT INFORMATION
  Report Type: Report from Study
  Country: US (occurrence: US)
  Receive Date: 20200414
  Receipt Date: 20220915
  Transmission Date: 20221027
  Serious: Yes (Hospitalization, Other)
  Sender: FDA-Public Use
  Company Number: US-SHIRE-US202013316

PATIENT
  Sex: Female
  Weight: 185.03 kg

DRUGS (55)
  1. HUMAN IMMUNOGLOBULIN G [Suspect]
     Active Substance: HUMAN IMMUNOGLOBULIN G
     Indication: Immunodeficiency common variable
     Dosage: 70 GRAM, Q2WEEKS
     Route: 042
     Dates: start: 20190903
  2. HUMAN IMMUNOGLOBULIN G [Suspect]
     Active Substance: HUMAN IMMUNOGLOBULIN G
     Indication: Immunodeficiency common variable
     Dosage: 70 GRAM, Q2WEEKS
     Route: 042
     Dates: start: 20190903
  3. HUMAN IMMUNOGLOBULIN G [Suspect]
     Active Substance: HUMAN IMMUNOGLOBULIN G
     Dosage: 80 GRAM, Q3WEEKS
     Route: 042
     Dates: start: 20190906
  4. HUMAN IMMUNOGLOBULIN G [Suspect]
     Active Substance: HUMAN IMMUNOGLOBULIN G
     Dosage: 80 GRAM, Q3WEEKS
     Route: 042
     Dates: start: 20190906
  5. HUMAN IMMUNOGLOBULIN G [Suspect]
     Active Substance: HUMAN IMMUNOGLOBULIN G
     Dosage: 80 GRAM, Q2WEEKS
     Route: 042
     Dates: start: 20190906
  6. HUMAN IMMUNOGLOBULIN G [Suspect]
     Active Substance: HUMAN IMMUNOGLOBULIN G
     Dosage: 80 GRAM, Q2WEEKS
     Route: 042
     Dates: start: 20190906
  7. HUMAN IMMUNOGLOBULIN G [Suspect]
     Active Substance: HUMAN IMMUNOGLOBULIN G
     Dosage: 70 GRAM, Q2WEEKS
     Route: 042
     Dates: start: 20190906
  8. HUMAN IMMUNOGLOBULIN G [Suspect]
     Active Substance: HUMAN IMMUNOGLOBULIN G
     Dosage: 70 GRAM, Q2WEEKS
     Route: 042
     Dates: start: 20190906
  9. HUMAN IMMUNOGLOBULIN G [Suspect]
     Active Substance: HUMAN IMMUNOGLOBULIN G
     Dosage: 60 GRAM, Q2WEEKS
     Route: 042
     Dates: start: 20190906
  10. HUMAN IMMUNOGLOBULIN G [Suspect]
     Active Substance: HUMAN IMMUNOGLOBULIN G
     Dosage: 60 GRAM, Q2WEEKS
     Route: 042
     Dates: start: 20190906
  11. HUMAN IMMUNOGLOBULIN G [Suspect]
     Active Substance: HUMAN IMMUNOGLOBULIN G
     Dosage: 70 GRAM, Q3WEEKS
     Route: 042
     Dates: start: 20190906
  12. HUMAN IMMUNOGLOBULIN G [Suspect]
     Active Substance: HUMAN IMMUNOGLOBULIN G
     Dosage: 70 GRAM, Q3WEEKS
     Route: 042
     Dates: start: 20190906
  13. HUMAN IMMUNOGLOBULIN G [Suspect]
     Active Substance: HUMAN IMMUNOGLOBULIN G
     Dosage: 100 GRAM, Q3WEEKS
     Route: 042
     Dates: start: 20190930
  14. HUMAN IMMUNOGLOBULIN G [Suspect]
     Active Substance: HUMAN IMMUNOGLOBULIN G
     Dosage: 100 GRAM, Q3WEEKS
     Route: 042
     Dates: start: 20190930
  15. HUMAN IMMUNOGLOBULIN G [Suspect]
     Active Substance: HUMAN IMMUNOGLOBULIN G
     Dosage: 90 GRAM
     Route: 042
     Dates: start: 20191003
  16. HUMAN IMMUNOGLOBULIN G [Suspect]
     Active Substance: HUMAN IMMUNOGLOBULIN G
     Dosage: 90 GRAM
     Route: 042
     Dates: start: 20191003
  17. HUMAN IMMUNOGLOBULIN G [Suspect]
     Active Substance: HUMAN IMMUNOGLOBULIN G
     Dosage: 70 GRAM
     Route: 042
     Dates: start: 20191023
  18. HUMAN IMMUNOGLOBULIN G [Suspect]
     Active Substance: HUMAN IMMUNOGLOBULIN G
     Dosage: 70 GRAM
     Route: 042
     Dates: start: 20191023
  19. HUMAN IMMUNOGLOBULIN G [Suspect]
     Active Substance: HUMAN IMMUNOGLOBULIN G
     Dosage: 70 GRAM, Q2WEEKS
     Route: 042
     Dates: start: 20200817
  20. HUMAN IMMUNOGLOBULIN G [Suspect]
     Active Substance: HUMAN IMMUNOGLOBULIN G
     Dosage: 70 GRAM, Q2WEEKS
     Route: 042
     Dates: start: 20200817
  21. HUMAN IMMUNOGLOBULIN G [Suspect]
     Active Substance: HUMAN IMMUNOGLOBULIN G
     Dosage: 60 GRAM, Q2WEEKS
     Route: 042
     Dates: start: 20200817
  22. HUMAN IMMUNOGLOBULIN G [Suspect]
     Active Substance: HUMAN IMMUNOGLOBULIN G
     Dosage: 60 GRAM, Q2WEEKS
     Route: 042
     Dates: start: 20200817
  23. HEPARIN [Concomitant]
     Active Substance: HEPARIN SODIUM
     Route: 065
  24. DIPHENHYDRAMINE [Concomitant]
     Active Substance: DIPHENHYDRAMINE
     Dosage: UNK
     Route: 065
  25. EPINEPHRINE [Concomitant]
     Active Substance: EPINEPHRINE
     Dosage: UNK
     Route: 065
  26. SODIUM CHLORIDE [Concomitant]
     Active Substance: SODIUM CHLORIDE
     Dosage: UNK
     Route: 065
  27. LISINOPRIL [Concomitant]
     Active Substance: LISINOPRIL
     Dosage: UNK
     Route: 065
  28. EXCEDRIN MIGRAINE [Concomitant]
     Active Substance: ACETAMINOPHEN\ASPIRIN\CAFFEINE
     Dosage: UNK
     Route: 065
  29. PRAZOSIN HYDROCHLORIDE [Concomitant]
     Active Substance: PRAZOSIN HYDROCHLORIDE
     Dosage: UNK
     Route: 065
  30. SOLU-MEDROL [Concomitant]
     Active Substance: METHYLPREDNISOLONE SODIUM SUCCINATE
     Dosage: 90 MILLIGRAM
     Route: 065
  31. PRAZOSIN [Concomitant]
     Active Substance: PRAZOSIN
     Dosage: UNK
     Route: 065
  32. ZALEPLON [Concomitant]
     Active Substance: ZALEPLON
     Dosage: UNK
     Route: 065
  33. BISOPROLOL FUMARATE [Concomitant]
     Active Substance: BISOPROLOL FUMARATE
     Dosage: UNK
     Route: 065
  34. ACETAMINOPHEN [Concomitant]
     Active Substance: ACETAMINOPHEN
     Dosage: UNK
     Route: 065
  35. CLONAZEPAM [Concomitant]
     Active Substance: CLONAZEPAM
     Dosage: UNK
     Route: 065
  36. LAMOTRIGINE [Concomitant]
     Active Substance: LAMOTRIGINE
     Dosage: UNK
     Route: 065
  37. CEPHALEXIN [Concomitant]
     Active Substance: CEPHALEXIN
  38. SODIUM CHLORIDE [Concomitant]
     Active Substance: SODIUM CHLORIDE
     Dosage: UNK
     Route: 065
  39. ONDANSETRON [Concomitant]
     Active Substance: ONDANSETRON
     Dosage: UNK
     Route: 065
  40. SIMVASTATIN [Concomitant]
     Active Substance: SIMVASTATIN
     Dosage: UNK
     Route: 065
  41. ESTRADIOL [Concomitant]
     Active Substance: ESTRADIOL
     Dosage: UNK
     Route: 065
  42. TYLENOL [Concomitant]
     Active Substance: ACETAMINOPHEN
     Dosage: UNK
     Route: 065
  43. OMEPRAZOLE [Concomitant]
     Active Substance: OMEPRAZOLE
     Dosage: UNK
     Route: 065
  44. BENADRYL [Concomitant]
     Active Substance: DIPHENHYDRAMINE HYDROCHLORIDE
     Dosage: UNK
     Route: 065
  45. LIDOCAINE [Concomitant]
     Active Substance: LIDOCAINE
     Dosage: UNK
     Route: 065
  46. ADVAIR HFA [Concomitant]
     Active Substance: FLUTICASONE PROPIONATE\SALMETEROL XINAFOATE
     Route: 065
  47. GUAIFENESIN DM [Concomitant]
     Active Substance: DEXTROMETHORPHAN\DEXTROMETHORPHAN HYDROBROMIDE\GUAIFENESIN
     Dosage: UNK
     Route: 065
  48. VENLAFAXINE HCL [Concomitant]
     Active Substance: VENLAFAXINE HYDROCHLORIDE
     Dosage: UNK
     Route: 065
  49. DOXYCYCLINE HYCLATE [Concomitant]
     Active Substance: DOXYCYCLINE HYCLATE
     Route: 065
  50. FLOVENT [Concomitant]
     Active Substance: FLUTICASONE PROPIONATE
     Dosage: UNK
     Route: 065
  51. AMBIEN [Concomitant]
     Active Substance: ZOLPIDEM TARTRATE
     Dosage: UNK
     Route: 065
  52. AUGMENTIN [Concomitant]
     Active Substance: AMOXICILLIN\CLAVULANATE POTASSIUM
     Dosage: UNK
     Route: 065
  53. UNSPECIFIED INGREDIENT [Concomitant]
     Active Substance: UNSPECIFIED INGREDIENT
     Dosage: UNK
     Route: 065
  54. ZALEPLON [Concomitant]
     Active Substance: ZALEPLON
  55. SOLU-MEDROL [Concomitant]
     Active Substance: METHYLPREDNISOLONE SODIUM SUCCINATE
     Route: 065

REACTIONS (35)
  - Respiratory disorder [Unknown]
  - Sinusitis [Unknown]
  - Bronchitis [Unknown]
  - Lymph gland infection [Unknown]
  - Blood pressure decreased [Unknown]
  - Sinus congestion [Unknown]
  - Multiple allergies [Unknown]
  - Illness [Unknown]
  - COVID-19 [Unknown]
  - Upper respiratory tract infection [Unknown]
  - Urinary tract infection [Unknown]
  - Pharyngitis streptococcal [Unknown]
  - Fungal infection [Unknown]
  - Infusion related reaction [Unknown]
  - Palpitations [Unknown]
  - Feeling hot [Unknown]
  - Dyspnoea [Unknown]
  - Blood pressure increased [Unknown]
  - Oedema [Unknown]
  - Rash [Unknown]
  - Flushing [Unknown]
  - Pain [Unknown]
  - Infusion site erythema [Unknown]
  - Vomiting [Unknown]
  - Hypertension [Unknown]
  - Chest discomfort [Unknown]
  - Heart rate increased [Unknown]
  - Hyperhidrosis [Unknown]
  - Anxiety [Unknown]
  - Nausea [Unknown]
  - Fatigue [Unknown]
  - Headache [Unknown]
  - Diarrhoea [Unknown]
  - Infusion site pain [Unknown]
  - Hypotension [Unknown]
